FAERS Safety Report 5870956-9 (Version None)
Quarter: 2008Q3

REPORT INFORMATION
  Report Type: 
  Country: None (occurrence: None)
  Receive Date: 20080904
  Receipt Date: 20080819
  Transmission Date: 20090109
  Serious: Yes (Hospitalization)
  Sender: FDA-Public Use
  Company Number: JP-ASTRAZENECA-2008SE04176

PATIENT
  Sex: Male

DRUGS (3)
  1. KENZEN 8 MG [Suspect]
     Indication: HYPERTENSION
     Route: 048
     Dates: start: 20080401, end: 20080501
  2. PRINZIDE [Suspect]
     Indication: HYPERTENSION
     Route: 048
     Dates: start: 20080501
  3. ERCEFURYL [Concomitant]
     Indication: DIVERTICULUM INTESTINAL
     Route: 065
     Dates: start: 20080501

REACTIONS (1)
  - ECZEMA [None]
